FAERS Safety Report 9750038 (Version 2)
Quarter: 2015Q3

REPORT INFORMATION
  Report Type: Spontaneous
  Country: DE (occurrence: DE)
  Receive Date: 20131212
  Receipt Date: 20150730
  Transmission Date: 20151125
  Serious: No
  Sender: FDA-Public Use
  Company Number: DE-GILEAD-DE-CVT-090697

PATIENT
  Age: 77 Year
  Sex: Male

DRUGS (5)
  1. MOLSIDOMINE [Concomitant]
     Active Substance: MOLSIDOMINE
     Route: 048
  2. CARMEN [Concomitant]
     Active Substance: LERCANIDIPINE
     Route: 048
  3. RANEXA [Suspect]
     Active Substance: RANOLAZINE
     Indication: ANGINA PECTORIS
     Route: 048
     Dates: start: 20090826, end: 20090909
  4. ISDN [Concomitant]
     Route: 048
  5. VOTUM PLUS [Concomitant]
     Active Substance: HYDROCHLOROTHIAZIDE\OLMESARTAN MEDOXOMIL
     Route: 048

REACTIONS (1)
  - Insomnia [Recovered/Resolved]

NARRATIVE: CASE EVENT DATE: 20090901
